FAERS Safety Report 14152350 (Version 2)
Quarter: 2017Q4

REPORT INFORMATION
  Report Type: Spontaneous
  Country: US (occurrence: US)
  Receive Date: 20171102
  Receipt Date: 20171215
  Transmission Date: 20180321
  Serious: Yes (Death)
  Sender: FDA-Public Use
  Company Number: US-CHIESI USA INC-US-CHSI-17-00050

PATIENT
  Age: 39 Year
  Sex: Male

DRUGS (6)
  1. KENGREAL [Suspect]
     Active Substance: CANGRELOR
     Route: 041
  2. TICAGRELOR. [Concomitant]
     Active Substance: TICAGRELOR
     Route: 065
  3. TICAGRELOR. [Concomitant]
     Active Substance: TICAGRELOR
     Indication: PLATELET AGGREGATION INHIBITION
     Route: 065
  4. CLOPIDOGREL [Concomitant]
     Active Substance: CLOPIDOGREL BISULFATE
     Indication: PLATELET AGGREGATION INHIBITION
     Route: 065
  5. CLOPIDOGREL [Concomitant]
     Active Substance: CLOPIDOGREL BISULFATE
     Route: 065
  6. KENGREAL [Suspect]
     Active Substance: CANGRELOR
     Indication: PLATELET COUNT INCREASED
     Route: 040

REACTIONS (3)
  - Haemorrhage intracranial [Fatal]
  - Drug ineffective for unapproved indication [Fatal]
  - Product quality issue [Fatal]

NARRATIVE: CASE EVENT DATE: 2017
